FAERS Safety Report 6526505-5 (Version None)
Quarter: 2010Q1

REPORT INFORMATION
  Report Type: 
  Country: None (occurrence: None)
  Receive Date: 20100105
  Receipt Date: 20091223
  Transmission Date: 20100710
  Serious: Yes (Other)
  Sender: FDA-Public Use
  Company Number: CA-BRISTOL-MYERS SQUIBB COMPANY-14891196

PATIENT
  Age: 43 Year
  Sex: Male

DRUGS (4)
  1. REYATAZ [Interacting]
     Indication: ANTIRETROVIRAL THERAPY
     Dosage: TAKEN 400MG
     Route: 048
     Dates: start: 20090218
  2. MARIJUANA [Interacting]
  3. TRUVADA [Suspect]
     Route: 048
     Dates: start: 20090218
  4. RITONAVIR [Suspect]
     Route: 048
     Dates: start: 20090218

REACTIONS (2)
  - DRUG INTERACTION [None]
  - THERAPEUTIC RESPONSE DECREASED [None]
